FAERS Safety Report 10700763 (Version 1)
Quarter: 2015Q1

REPORT INFORMATION
  Report Type: Spontaneous
  Country: US (occurrence: None)
  Receive Date: 20150108
  Receipt Date: 20150108
  Transmission Date: 20150721
  Serious: Yes (Other)
  Sender: FDA-Public Use
  Company Number: None

PATIENT
  Age: 70 Year
  Sex: Female
  Weight: 78.93 kg

DRUGS (10)
  1. VITAMIN D-3 [Concomitant]
  2. PRAVASTATIN SODIUIM 20 MG TAB. GLENMARK [Suspect]
     Active Substance: PRAVASTATIN\PRAVASTATIN SODIUM
     Indication: HIGH DENSITY LIPOPROTEIN INCREASED
     Dosage: 1 GTAB. AT BEDTIME, BY MOUTH
     Dates: start: 20141212, end: 20141213
  3. NATEGLINIDE. [Concomitant]
     Active Substance: NATEGLINIDE
  4. AMLODIPINE [Concomitant]
     Active Substance: AMLODIPINE BESYLATE
  5. MECLIZINE [Concomitant]
     Active Substance: MECLIZINE\MECLIZINE HYDROCHLORIDE
  6. PROBIOTIC ALPHA SIPOIC ACID [Concomitant]
  7. DYOZIDE [Concomitant]
  8. CALCITONIN SALMON. [Concomitant]
     Active Substance: CALCITONIN SALMON
  9. CLONAZEPAM. [Concomitant]
     Active Substance: CLONAZEPAM
  10. COQ ID [Concomitant]

REACTIONS (4)
  - Feeling abnormal [None]
  - Balance disorder [None]
  - Gait disturbance [None]
  - Movement disorder [None]

NARRATIVE: CASE EVENT DATE: 20141213
